FAERS Safety Report 11908188 (Version 1)
Quarter: 2016Q1

REPORT INFORMATION
  Report Type: Spontaneous
  Country: US (occurrence: US)
  Receive Date: 20160111
  Receipt Date: 20160111
  Transmission Date: 20160526
  Serious: Yes (Other)
  Sender: FDA-Public Use
  Company Number: US-CELGENE-USA-2016010379

PATIENT
  Sex: Male

DRUGS (5)
  1. THALOMID [Suspect]
     Active Substance: THALIDOMIDE
     Indication: PRODUCT USED FOR UNKNOWN INDICATION
     Route: 048
     Dates: start: 201402
  2. THALOMID [Suspect]
     Active Substance: THALIDOMIDE
     Dosage: 100-150
     Route: 048
     Dates: start: 201503
  3. THALOMID [Suspect]
     Active Substance: THALIDOMIDE
     Dosage: 150-200 MG
     Route: 048
     Dates: start: 201405
  4. THALOMID [Suspect]
     Active Substance: THALIDOMIDE
     Dosage: 300-200 MG
     Route: 048
     Dates: start: 201409
  5. THALOMID [Suspect]
     Active Substance: THALIDOMIDE
     Route: 048
     Dates: start: 201505

REACTIONS (1)
  - Haemorrhage [Unknown]
